FAERS Safety Report 4450863-9 (Version None)
Quarter: 2004Q3

REPORT INFORMATION
  Report Type: 
  Country: None (occurrence: None)
  Receive Date: 20040916
  Receipt Date: 20011002
  Transmission Date: 20050211
  Serious: Yes (Other)
  Sender: FDA-Public Use
  Company Number: US-BRISTOL-MYERS SQUIBB COMPANY-11472222

PATIENT
  Age: 28 Year
  Sex: Female

DRUGS (14)
  1. STADOL [Suspect]
     Indication: MIGRAINE
     Dosage: DURATION: ONCE OR TWICE
     Route: 045
     Dates: start: 19930513
  2. STADOL [Suspect]
     Indication: MIGRAINE
     Route: 030
     Dates: start: 19890101
  3. IMITREX [Concomitant]
  4. PHENERGAN HCL [Concomitant]
     Route: 030
  5. DEMEROL [Concomitant]
     Route: 030
  6. PERCOCET [Concomitant]
  7. LIMBITROL [Concomitant]
  8. ZESTRIL [Concomitant]
  9. TORADOL [Concomitant]
     Route: 030
  10. VASOTEC [Concomitant]
  11. TAMOFEN [Concomitant]
  12. VISTARIL [Concomitant]
     Route: 030
  13. VALIUM [Concomitant]
     Indication: PAIN
     Route: 042
  14. DARVOCET [Concomitant]

REACTIONS (1)
  - DEPENDENCE [None]
